FAERS Safety Report 18594669 (Version 2)
Quarter: 2020Q4

REPORT INFORMATION
  Report Type: Spontaneous
  Country: SE (occurrence: SE)
  Receive Date: 20201209
  Receipt Date: 20201209
  Transmission Date: 20210114
  Serious: Yes (Other)
  Sender: FDA-Public Use
  Company Number: SE-ORION CORPORATION ORION PHARMA-20_00012084

PATIENT
  Age: 17 Year
  Sex: Female

DRUGS (4)
  1. METHOTREXATE (TRADE NAME UNKNOWN) [Suspect]
     Active Substance: METHOTREXATE
     Indication: JUVENILE IDIOPATHIC ARTHRITIS
     Dosage: 4 TABLETS PER WEEK
     Route: 048
     Dates: start: 20200730, end: 20201118
  2. FOLSYRA [Concomitant]
     Route: 065
  3. HUMIRA [Concomitant]
     Active Substance: ADALIMUMAB
     Route: 065
  4. MIDIANA [Concomitant]
     Route: 065

REACTIONS (2)
  - Paraesthesia [Recovered/Resolved]
  - Pruritus [Recovered/Resolved]

NARRATIVE: CASE EVENT DATE: 202010
